FAERS Safety Report 7297352-4 (Version None)
Quarter: 2011Q1

REPORT INFORMATION
  Report Type: 
  Country: None (occurrence: None)
  Receive Date: 20110216
  Receipt Date: 20110210
  Transmission Date: 20110831
  Serious: Yes (Hospitalization)
  Sender: FDA-Public Use
  Company Number: US-B.I. PHARMACEUTICALS,INC./RIDGEFIELD-2011-BP-02622BP

PATIENT
  Age: 84 Year
  Sex: Female

DRUGS (2)
  1. GLUCOPHAGE [Concomitant]
     Indication: DIABETES MELLITUS
     Route: 048
  2. PRADAXA [Suspect]
     Indication: ATRIAL FIBRILLATION
     Dosage: 300 MG
     Route: 048
     Dates: start: 20110105, end: 20110124

REACTIONS (3)
  - BLOOD GLUCOSE INCREASED [None]
  - PERSONALITY CHANGE [None]
  - GAIT DISTURBANCE [None]
